FAERS Safety Report 5059754-6 (Version None)
Quarter: 2006Q3

REPORT INFORMATION
  Report Type: 
  Country: None (occurrence: None)
  Receive Date: 20060724
  Receipt Date: 20060712
  Transmission Date: 20061208
  Serious: Yes (Hospitalization)
  Sender: FDA-Public Use
  Company Number: PHEH2006US08913

PATIENT
  Age: 41 Year
  Sex: Male

DRUGS (2)
  1. GLEEVEC [Suspect]
     Indication: CHRONIC MYELOID LEUKAEMIA
     Dosage: 800 MG, QD
     Route: 048
     Dates: start: 20031217
  2. ENTOCORT EC [Suspect]
     Dates: start: 20060622

REACTIONS (8)
  - ABDOMINAL PAIN [None]
  - CROHN'S DISEASE [None]
  - DIARRHOEA [None]
  - ERYTHEMA [None]
  - GAIT DISTURBANCE [None]
  - HYPERHIDROSIS [None]
  - NODULE ON EXTREMITY [None]
  - VOMITING [None]
